FAERS Safety Report 8956112 (Version 2)
Quarter: 2013Q1

REPORT INFORMATION
  Report Type: Report from Study
  Country: IT (occurrence: IT)
  Receive Date: 20121210
  Receipt Date: 20130129
  Transmission Date: 20140127
  Serious: Yes (Life-Threatening, Hospitalization, Other)
  Sender: FDA-Public Use
  Company Number: IT-SHIRE-SPV1-2011-01321

PATIENT
  Age: 17 Year
  Sex: Male
  Weight: 39.2 kg

DRUGS (7)
  1. ELAPRASE [Suspect]
     Indication: MUCOPOLYSACCHARIDOSIS II
     Dosage: 0.5 MG/KG, 1X/WEEK
     Route: 041
     Dates: start: 20060808
  2. CAPTOPRIL [Concomitant]
     Indication: CARDIOVASCULAR DISORDER
     Dosage: 8 MG, 3X/DAY:TID
     Route: 048
     Dates: start: 20030110
  3. CHLORPHENAMINE [Concomitant]
     Indication: PREMEDICATION
     Dosage: 7.5 MG, 1X/WEEK
     Route: 040
     Dates: start: 20100302
  4. OXATOMIDE [Concomitant]
     Indication: PREMEDICATION
     Dosage: 18 GTT, 1X/WEEK
     Route: 048
     Dates: start: 20100302
  5. LEVETRICETAM [Concomitant]
     Indication: NERVOUS SYSTEM DISORDER
     Dosage: 1 G, 2X/DAY:BID
     Route: 048
     Dates: start: 201008, end: 20111215
  6. LEVETRICETAM [Concomitant]
     Dosage: 800 MG, 2X/DAY:BID
     Route: 048
     Dates: start: 20100515, end: 201008
  7. OTHER ANTIDEPRESSANTS [Concomitant]
     Indication: DEPRESSION
     Dosage: 0.25 MG, 1X/DAY:QD
     Route: 048
     Dates: start: 200803

REACTIONS (4)
  - Cardio-respiratory arrest [Unknown]
  - Acute respiratory failure [Recovered/Resolved]
  - Pneumonia [Unknown]
  - Pulmonary oedema [Unknown]
